FAERS Safety Report 7788585-9 (Version None)
Quarter: 2011Q3

REPORT INFORMATION
  Report Type: 
  Country: None (occurrence: None)
  Receive Date: 20110930
  Receipt Date: 20110926
  Transmission Date: 20111222
  Serious: Yes (Hospitalization)
  Sender: FDA-Public Use
  Company Number: US-BAYER-2011-059931

PATIENT
  Age: 57 Year
  Sex: Female

DRUGS (2)
  1. NEXAVAR [Suspect]
     Indication: NEOPLASM MALIGNANT
     Dosage: 200 MG, QD
  2. NEXAVAR [Suspect]
     Indication: THYROID CANCER
     Dosage: 200 MG, QD
     Dates: start: 20110510

REACTIONS (4)
  - FATIGUE [None]
  - BALANCE DISORDER [None]
  - CONVULSION [None]
  - SCRATCH [None]
